FAERS Safety Report 19916772 (Version 1)
Quarter: 2021Q4

REPORT INFORMATION
  Report Type: Spontaneous
  Country: US (occurrence: US)
  Receive Date: 20211004
  Receipt Date: 20211004
  Transmission Date: 20220303
  Serious: Yes (Death)
  Sender: FDA-Public Use
  Company Number: None

PATIENT
  Age: 73 Year
  Sex: Male
  Weight: 72 kg

DRUGS (7)
  1. CIPROFLOXACIN [Suspect]
     Active Substance: CIPROFLOXACIN
     Indication: Prostatectomy
     Dosage: ?          QUANTITY:14 TABLET(S);
     Route: 048
     Dates: start: 20140512, end: 20140526
  2. LEVOFLOXACIN [Suspect]
     Active Substance: LEVOFLOXACIN
     Indication: Hernia repair
     Dosage: ?          QUANTITY:1 INJECTION(S);
     Route: 042
     Dates: start: 20150505
  3. CALCIUM CARBONATE [Concomitant]
     Active Substance: CALCIUM CARBONATE
  4. FISH OIL [Concomitant]
     Active Substance: FISH OIL
  5. CHONDROITIN SULFATE (BOVINE)\GLUCOSAMINE SULFATE [Concomitant]
     Active Substance: CHONDROITIN SULFATE (BOVINE)\GLUCOSAMINE SULFATE
  6. ACETAMINOPHEN\HYDROCODONE [Concomitant]
     Active Substance: ACETAMINOPHEN\HYDROCODONE
  7. VITAMINS [Concomitant]
     Active Substance: VITAMINS

REACTIONS (4)
  - Creutzfeldt-Jakob disease [None]
  - Hydrocephalus [None]
  - Hernia [None]
  - Adverse drug reaction [None]

NARRATIVE: CASE EVENT DATE: 20140512
